FAERS Safety Report 4870338-2 (Version None)
Quarter: 2005Q4

REPORT INFORMATION
  Report Type: 
  Country: None (occurrence: None)
  Receive Date: 20051228
  Receipt Date: 20051212
  Transmission Date: 20060501
  Serious: Yes (Hospitalization, Other)
  Sender: FDA-Public Use
  Company Number: 2005-US-01304

PATIENT
  Age: 38 Year
  Sex: Female

DRUGS (1)
  1. CLOZAPINE [Suspect]
     Dosage: 37.5 MG, QD, ORAL
     Route: 048
     Dates: start: 20020701, end: 20051101

REACTIONS (3)
  - OESOPHAGEAL PERFORATION [None]
  - OESOPHAGEAL RUPTURE [None]
  - SELF INJURIOUS BEHAVIOUR [None]
